FAERS Safety Report 25069911 (Version 3)
Quarter: 2025Q4

REPORT INFORMATION
  Report Type: Report from Study
  Country: EU (occurrence: EU)
  Receive Date: 20250312
  Receipt Date: 20251003
  Transmission Date: 20260118
  Serious: Yes (Other)
  Sender: TAKEDA
  Company Number: EU-TAKEDA-2024TUS028194

PATIENT
  Sex: Male
  Weight: 89 kg

DRUGS (13)
  1. ADYNOVATE [Suspect]
     Active Substance: ANTIHEMOPHILIC FACTOR, HUMAN RECOMBINANT
     Indication: Factor VIII deficiency
     Dosage: 34 INTERNATIONAL UNIT/KILOGRAM, 2/WEEK
     Dates: start: 20211007
  2. ADYNOVATE [Suspect]
     Active Substance: ANTIHEMOPHILIC FACTOR, HUMAN RECOMBINANT
  3. ADYNOVATE [Suspect]
     Active Substance: ANTIHEMOPHILIC FACTOR, HUMAN RECOMBINANT
  4. METOPROLOL [Concomitant]
     Active Substance: METOPROLOL
     Indication: Hypertension
     Dosage: 47.5 MILLIGRAM, QD
     Dates: start: 20211006
  5. NORVIR [Concomitant]
     Active Substance: RITONAVIR
     Indication: HIV infection
     Dosage: 100 MILLIGRAM, QD
     Dates: start: 20051005
  6. IBUPROFEN [Concomitant]
     Active Substance: IBUPROFEN
     Indication: Pain
     Dosage: 600 MILLIGRAM, QD
     Dates: start: 20220918, end: 20221002
  7. IBUPROFEN [Concomitant]
     Active Substance: IBUPROFEN
     Indication: Joint injury
     Dosage: 600 MILLIGRAM, BID
     Dates: start: 20220701, end: 20220703
  8. CHOLECALCIFEROL [Concomitant]
     Active Substance: CHOLECALCIFEROL
     Indication: Vitamin D deficiency
     Dosage: 20 MILLIGRAM, 1/WEEK
     Dates: start: 20230429
  9. CYKLOKAPRON [Concomitant]
     Active Substance: TRANEXAMIC ACID
     Indication: Oesophagogastroscopy
     Dosage: 500 MILLIGRAM
     Dates: start: 20231010, end: 20231016
  10. DOVATO [Concomitant]
     Active Substance: DOLUTEGRAVIR SODIUM\LAMIVUDINE
     Indication: HIV infection
     Dosage: 1 MILLIGRAM, QD
     Dates: start: 20241129
  11. CANDESARTAN [Concomitant]
     Active Substance: CANDESARTAN
     Indication: Hypertension
     Dosage: 8 MILLIGRAM, BID
     Dates: start: 202501
  12. HYDROCHLOROTHIAZIDE [Concomitant]
     Active Substance: HYDROCHLOROTHIAZIDE
     Indication: Hypertension
     Dosage: 12.5 MILLIGRAM, QD
     Dates: start: 202501
  13. AMLODIPINE BESYLATE [Concomitant]
     Active Substance: AMLODIPINE BESYLATE
     Indication: Hypertonia
     Dosage: 5 MILLIGRAM, QD
     Dates: start: 2025

REACTIONS (6)
  - Hypertensive crisis [Recovered/Resolved]
  - Haemophilic arthropathy [Not Recovered/Not Resolved]
  - Periarthritis [Not Recovered/Not Resolved]
  - COVID-19 [Recovered/Resolved]
  - Joint injury [Recovered/Resolved]
  - Ligament sprain [Recovered/Resolved]

NARRATIVE: CASE EVENT DATE: 20240220
